FAERS Safety Report 6582384-1 (Version None)
Quarter: 2010Q1

REPORT INFORMATION
  Report Type: 
  Country: None (occurrence: None)
  Receive Date: 20100216
  Receipt Date: 20100201
  Transmission Date: 20100710
  Serious: Yes (Hospitalization)
  Sender: FDA-Public Use
  Company Number: TR-SANOFI-AVENTIS-2010SA006109

PATIENT
  Age: 66 Year
  Sex: Male
  Weight: 67 kg

DRUGS (11)
  1. AFLIBERCEPT [Suspect]
     Indication: NON-SMALL CELL LUNG CANCER METASTATIC
     Route: 042
     Dates: start: 20091102, end: 20091102
  2. AFLIBERCEPT [Suspect]
     Route: 042
     Dates: start: 20091215, end: 20091215
  3. DOCETAXEL [Suspect]
     Indication: NON-SMALL CELL LUNG CANCER METASTATIC
     Route: 042
     Dates: start: 20091102, end: 20091102
  4. DOCETAXEL [Suspect]
     Route: 042
     Dates: start: 20091215, end: 20091215
  5. ASPIRIN [Concomitant]
     Dates: start: 20070201, end: 20100118
  6. BELOC [Concomitant]
     Dates: start: 20070201, end: 20100120
  7. FENOFIBRATE [Concomitant]
     Dates: start: 20070201, end: 20100118
  8. ATORVASTATIN [Concomitant]
     Dates: start: 20070201, end: 20100118
  9. CORTICOSTEROIDS [Concomitant]
  10. LACTULOSE [Concomitant]
     Dates: start: 20091217, end: 20100118
  11. CLEXANE [Concomitant]
     Dates: start: 20100114, end: 20100120

REACTIONS (1)
  - HEPATOMEGALY [None]
